FAERS Safety Report 4466248-5 (Version None)
Quarter: 2004Q4

REPORT INFORMATION
  Report Type: 
  Country: None (occurrence: None)
  Receive Date: 20041005
  Receipt Date: 20040928
  Transmission Date: 20050328
  Serious: Yes (Death, Other)
  Sender: FDA-Public Use
  Company Number: NL-JNJFOC-20040305552

PATIENT
  Age: 9 Year
  Sex: Female

DRUGS (6)
  1. INFLIXIMAB [Suspect]
     Route: 042
  2. ETANERCEPT [Suspect]
  3. ETANERCEPT [Suspect]
  4. PREDNISONE [Suspect]
  5. METHOTREXATE [Concomitant]
  6. METHYLPREDNISOLONE [Concomitant]

REACTIONS (9)
  - CARDIAC ARREST [None]
  - CATHETER RELATED INFECTION [None]
  - CUTANEOUS TUBERCULOSIS [None]
  - ENTEROBACTER INFECTION [None]
  - ESCHERICHIA INFECTION [None]
  - JOINT TUBERCULOSIS [None]
  - OPPORTUNISTIC INFECTION [None]
  - RESPIRATORY FAILURE [None]
  - SHOCK [None]
